FAERS Safety Report 11742771 (Version 1)
Quarter: 2015Q4

REPORT INFORMATION
  Report Type: Spontaneous
  Country: US (occurrence: US)
  Receive Date: 20151116
  Receipt Date: 20151116
  Transmission Date: 20160304
  Serious: Yes (Hospitalization)
  Sender: FDA-Public Use
  Company Number: PHHY2015US146598

PATIENT
  Age: 49 Year
  Sex: Female

DRUGS (16)
  1. ASPIRIN. [Concomitant]
     Active Substance: ASPIRIN
     Indication: PRODUCT USED FOR UNKNOWN INDICATION
     Dosage: 81 MG, UNK
     Route: 065
  2. WARFARIN [Interacting]
     Active Substance: WARFARIN
     Dosage: 3.5 MG, UNK
     Route: 065
  3. LOMITAPIDE [Interacting]
     Active Substance: LOMITAPIDE MESYLATE
     Dosage: 1 MG/KG, QD
     Route: 065
  4. LOMITAPIDE [Interacting]
     Active Substance: LOMITAPIDE MESYLATE
     Dosage: 20 MG, QD
     Route: 065
  5. LOMITAPIDE [Interacting]
     Active Substance: LOMITAPIDE MESYLATE
     Dosage: 60 MG, QD
  6. WARFARIN [Suspect]
     Active Substance: WARFARIN
     Indication: PRODUCT USED FOR UNKNOWN INDICATION
     Dosage: 4 MG, UNK
     Route: 065
  7. LOMITAPIDE [Interacting]
     Active Substance: LOMITAPIDE MESYLATE
     Dosage: 5 MG, QD
     Route: 065
  8. ROSUVASTATIN CALCIUM. [Concomitant]
     Active Substance: ROSUVASTATIN CALCIUM
     Indication: BLOOD CHOLESTEROL
     Dosage: 40 MG, UNK
     Route: 065
  9. METOPROLOL TARTRATE. [Concomitant]
     Active Substance: METOPROLOL TARTRATE
     Indication: PRODUCT USED FOR UNKNOWN INDICATION
     Dosage: 100 MG, UNK
     Route: 065
  10. WARFARIN [Interacting]
     Active Substance: WARFARIN
     Dosage: 2.5 MG, UNK
     Route: 065
  11. LOMITAPIDE [Interacting]
     Active Substance: LOMITAPIDE MESYLATE
     Dosage: 40 MG, QD
     Route: 065
  12. COLESEVELAM HYDROCHLORIDE [Concomitant]
     Active Substance: COLESEVELAM HYDROCHLORIDE
     Indication: BLOOD CHOLESTEROL
     Dosage: 3750 MG, UNK
     Route: 065
  13. LOMITAPIDE [Interacting]
     Active Substance: LOMITAPIDE MESYLATE
     Dosage: 10 MG, QD
     Route: 065
  14. EZETIMIBE. [Concomitant]
     Active Substance: EZETIMIBE
     Indication: BLOOD CHOLESTEROL
     Dosage: 10 MG, UNK
     Route: 065
  15. LOMITAPIDE [Interacting]
     Active Substance: LOMITAPIDE MESYLATE
     Indication: BLOOD CHOLESTEROL
     Dosage: 0.03 MG/KG, QD
     Route: 065
  16. FERROUS SULFATE [Concomitant]
     Active Substance: FERROUS SULFATE\FERROUS SULFATE, DRIED
     Indication: PRODUCT USED FOR UNKNOWN INDICATION
     Dosage: 325 MG, UNK
     Route: 065

REACTIONS (3)
  - Subdural haematoma [Recovered/Resolved]
  - Cerebrovascular accident [Recovered/Resolved]
  - Drug interaction [Recovered/Resolved]
